FAERS Safety Report 9528218 (Version 3)
Quarter: 2013Q4

REPORT INFORMATION
  Report Type: Spontaneous
  Country: JP (occurrence: JP)
  Receive Date: 20130917
  Receipt Date: 20131009
  Transmission Date: 20140711
  Serious: Yes (Hospitalization)
  Sender: FDA-Public Use
  Company Number: PHHY2013JP102326

PATIENT
  Age: 60 Year
  Sex: Male
  Weight: 76 kg

DRUGS (6)
  1. TASIGNA [Suspect]
     Indication: CHRONIC MYELOID LEUKAEMIA
     Dosage: 600 MG, (300 MG TWICE DAILY)
     Route: 048
     Dates: start: 20110125, end: 20110328
  2. TASIGNA [Suspect]
     Dosage: 200 MG, QD
     Route: 048
     Dates: start: 20110411, end: 20110424
  3. TASIGNA [Suspect]
     Dosage: 400 MG, (200 MG TWICE DAILY)
     Route: 048
     Dates: start: 20110425, end: 20110515
  4. TASIGNA [Suspect]
     Dosage: 600 MG, (300 MG TWICE DAILY)
     Route: 048
     Dates: start: 20110516, end: 20130911
  5. SEIBULE [Concomitant]
     Indication: DIABETES MELLITUS
     Dosage: 150 MG, UNK
     Route: 048
     Dates: start: 20110104
  6. BLOPRESS [Concomitant]
     Indication: HYPERTENSION
     Dosage: 4 MG, UNK
     Route: 048
     Dates: start: 20110104

REACTIONS (6)
  - Angina unstable [Recovered/Resolved]
  - Liver disorder [Unknown]
  - Blood bilirubin increased [Recovered/Resolved]
  - Aspartate aminotransferase increased [Recovered/Resolved]
  - Blood alkaline phosphatase increased [Not Recovered/Not Resolved]
  - Alanine aminotransferase increased [Not Recovered/Not Resolved]
